FAERS Safety Report 8895653 (Version 1)
Quarter: 2012Q4

REPORT INFORMATION
  Report Type: 
  Country: DE (occurrence: DE)
  Receive Date: 20121108
  Receipt Date: 20121108
  Transmission Date: 20130627
  Serious: Yes (Other)
  Sender: FDA-Public Use
  Company Number: DE-PFIZER INC-2012278270

PATIENT
  Age: 6 None
  Sex: Male

DRUGS (1)
  1. SUTENT [Suspect]

REACTIONS (2)
  - Cardio-respiratory distress [Unknown]
  - Palmar-plantar erythrodysaesthesia syndrome [Unknown]
